FAERS Safety Report 15807981 (Version 1)
Quarter: 2019Q1

REPORT INFORMATION
  Report Type: Spontaneous
  Country: DE (occurrence: DE)
  Receive Date: 20190110
  Receipt Date: 20190110
  Transmission Date: 20190417
  Serious: Yes (Life-Threatening, Hospitalization)
  Sender: FDA-Public Use
  Company Number: DE-JNJFOC-20190110228

PATIENT
  Age: 24 Year
  Sex: Male
  Weight: 86 kg

DRUGS (6)
  1. CHLORELLA VULGARIS [Suspect]
     Active Substance: CHLORELLA VULGARIS
     Indication: PRODUCT USED FOR UNKNOWN INDICATION
     Route: 048
  2. ETOPOSIDE. [Concomitant]
     Active Substance: ETOPOSIDE
     Indication: EWING^S SARCOMA
     Route: 042
     Dates: start: 20180914, end: 20181123
  3. VINCRISTINE [Concomitant]
     Active Substance: VINCRISTINE
     Indication: EWING^S SARCOMA
     Route: 042
     Dates: start: 20180914, end: 20181120
  4. SPIRULINA SPP [Suspect]
     Active Substance: SPIRULINA
     Indication: PRODUCT USED FOR UNKNOWN INDICATION
     Route: 048
  5. DOXORUBICIN HYDROCHLORIDE. [Suspect]
     Active Substance: DOXORUBICIN HYDROCHLORIDE
     Indication: EWING^S SARCOMA
     Route: 042
     Dates: start: 20180914, end: 20181123
  6. IFOSFAMIDE. [Concomitant]
     Active Substance: IFOSFAMIDE
     Indication: EWING^S SARCOMA
     Route: 042
     Dates: start: 20180914, end: 20181123

REACTIONS (6)
  - Syncope [Not Recovered/Not Resolved]
  - Cardiomyopathy [Not Recovered/Not Resolved]
  - Off label use [Unknown]
  - Cardiac failure acute [Not Recovered/Not Resolved]
  - Product use in unapproved indication [Unknown]
  - Ejection fraction decreased [Not Recovered/Not Resolved]

NARRATIVE: CASE EVENT DATE: 20180914
